FAERS Safety Report 6070046-9 (Version None)
Quarter: 2009Q1

REPORT INFORMATION
  Report Type: 
  Country: None (occurrence: None)
  Receive Date: 20090209
  Receipt Date: 20090203
  Transmission Date: 20090719
  Serious: Yes (Death, Hospitalization)
  Sender: FDA-Public Use
  Company Number: PHHY2009MX03434

PATIENT
  Sex: Male

DRUGS (1)
  1. DIOVAN HCT [Suspect]
     Indication: HYPERTENSION
     Dosage: 1 DF, QD
     Route: 048

REACTIONS (5)
  - CARDIO-RESPIRATORY ARREST [None]
  - CATHETER RELATED COMPLICATION [None]
  - HYPERKALAEMIA [None]
  - RENAL FAILURE [None]
  - SURGERY [None]
